FAERS Safety Report 7560603-2 (Version None)
Quarter: 2011Q2

REPORT INFORMATION
  Report Type: 
  Country: None (occurrence: None)
  Receive Date: 20110621
  Receipt Date: 20110325
  Transmission Date: 20111010
  Serious: Yes (Other)
  Sender: FDA-Public Use
  Company Number: US-ASTRAZENECA-2011SE18198

PATIENT

DRUGS (1)
  1. BUDESONIDE [Suspect]
     Route: 048

REACTIONS (1)
  - ADRENAL INSUFFICIENCY [None]
